FAERS Safety Report 25109134 (Version 1)
Quarter: 2025Q1

REPORT INFORMATION
  Report Type: Other
  Country: CN (occurrence: CN)
  Receive Date: 20250322
  Receipt Date: 20250322
  Transmission Date: 20250408
  Serious: Yes (Hospitalization, Other)
  Sender: LYNE LABORATORIES
  Company Number: CN-Lyne Laboratories Inc.-2173457

PATIENT
  Age: 48 Year
  Sex: Female

DRUGS (11)
  1. CLINDAMYCIN PALMITATE HYDROCHLORIDE [Suspect]
     Active Substance: CLINDAMYCIN PALMITATE HYDROCHLORIDE
     Indication: Pneumonia
  2. HERBALS [Suspect]
     Active Substance: HERBALS
  3. GARDENIA JASMINOIDES FRUIT [Suspect]
     Active Substance: GARDENIA JASMINOIDES FRUIT
  4. ISATIS TINCTORIA ROOT [Suspect]
     Active Substance: ISATIS TINCTORIA ROOT
  5. SODIUM CHLORIDE [Suspect]
     Active Substance: SODIUM CHLORIDE
  6. GLUCOSE (DEXTROSE MONOHYDRATE) [Suspect]
     Active Substance: DEXTROSE MONOHYDRATE
  7. LONICERA JAPONICA FLOWER [Suspect]
     Active Substance: LONICERA JAPONICA FLOWER
  8. HERBALS [Suspect]
     Active Substance: HERBALS
  9. HERBALS [Suspect]
     Active Substance: HERBALS
  10. CHOLIC ACID [Suspect]
     Active Substance: CHOLIC ACID
  11. HYODEOXYCHOLIC ACID [Suspect]
     Active Substance: HYODEOXYCHOLIC ACID

REACTIONS (9)
  - Loss of consciousness [Recovered/Resolved]
  - Drug interaction [Unknown]
  - Vomiting [Recovered/Resolved]
  - Nausea [Recovered/Resolved]
  - Incontinence [Recovered/Resolved]
  - Hyperhidrosis [Recovered/Resolved]
  - Restlessness [Recovered/Resolved]
  - Pyrexia [Recovered/Resolved]
  - Seizure [Recovered/Resolved]
